FAERS Safety Report 16424037 (Version 1)
Quarter: 2019Q2

REPORT INFORMATION
  Report Type: Spontaneous
  Country: US (occurrence: US)
  Receive Date: 20190613
  Receipt Date: 20190613
  Transmission Date: 20190711
  Serious: Yes (Hospitalization)
  Sender: FDA-Public Use
  Company Number: US-TEVA-2019-US-1061418

PATIENT
  Age: 8 Month
  Sex: Male

DRUGS (1)
  1. FENTANYL TRANSDERMAL SYSTEM [Suspect]
     Active Substance: FENTANYL
     Route: 065

REACTIONS (3)
  - Brain oedema [Recovering/Resolving]
  - Toxicity to various agents [Recovering/Resolving]
  - Accidental exposure to product by child [Unknown]
